FAERS Safety Report 8352859-3 (Version None)
Quarter: 2012Q2

REPORT INFORMATION
  Report Type: 
  Country: None (occurrence: None)
  Receive Date: 20120511
  Receipt Date: 20120430
  Transmission Date: 20120825
  Serious: Yes (Other)
  Sender: FDA-Public Use
  Company Number: US-ELI_LILLY_AND_COMPANY-US201203000129

PATIENT
  Age: 16 Year
  Sex: Female
  Weight: 61.224 kg

DRUGS (3)
  1. CONTRACEPTIVES [Concomitant]
  2. STRATTERA [Suspect]
     Dosage: 40 MG, UNK
  3. STRATTERA [Suspect]
     Indication: ATTENTION DEFICIT/HYPERACTIVITY DISORDER
     Dosage: 60 MG, UNK

REACTIONS (3)
  - VISION BLURRED [None]
  - HYPERHIDROSIS [None]
  - HYPERTENSION [None]
